FAERS Safety Report 6793395-5 (Version None)
Quarter: 2010Q2

REPORT INFORMATION
  Report Type: 
  Country: None (occurrence: None)
  Receive Date: 20100624
  Receipt Date: 20100222
  Transmission Date: 20101027
  Serious: Yes (Death)
  Sender: FDA-Public Use
  Company Number: US-MYLANLABS-2010S1001732

PATIENT
  Age: 50 Year
  Sex: Male

DRUGS (7)
  1. CLOZAPINE [Suspect]
     Route: 048
     Dates: start: 20060412, end: 20100116
  2. PRAVASTATIN [Concomitant]
     Dosage: FOR MORE THAN 5 YEARS
  3. REQUIP [Concomitant]
     Dosage: FOR MORE THAN 5 YEARS
  4. GEODON [Concomitant]
     Dosage: FOR MORE THAN 5 YEARS
  5. ZOLOFT [Concomitant]
     Dosage: FOR MORE THAN 5 YEARS
  6. TOPAMAX [Concomitant]
     Dosage: FOR MORE THAN 5 YEARS
  7. WELLBUTRIN XL [Concomitant]
     Dosage: FOR MORE THAN 5 YEARS

REACTIONS (1)
  - DEATH [None]
